FAERS Safety Report 7324656-9 (Version None)
Quarter: 2011Q1

REPORT INFORMATION
  Report Type: 
  Country: None (occurrence: None)
  Receive Date: 20110301
  Receipt Date: 20110224
  Transmission Date: 20110831
  Serious: Yes (Death, Other)
  Sender: FDA-Public Use
  Company Number: PHHY2011GB15176

PATIENT
  Sex: Female

DRUGS (6)
  1. SEVOFLURANE [Concomitant]
     Indication: ANAESTHESIA
  2. DEXAMETHASONE [Suspect]
     Dosage: 4 MG, EVERY 6 HOURS
  3. PROPOFOL [Concomitant]
     Indication: ANAESTHESIA
     Dosage: 90 MG
  4. ANTIBIOTICS [Concomitant]
     Indication: PROPHYLAXIS URINARY TRACT INFECTION
  5. REMIFENTANIL [Concomitant]
     Indication: ANAESTHESIA
  6. VECURONIUM BROMIDE [Concomitant]
     Indication: NEUROMUSCULAR BLOCKADE

REACTIONS (12)
  - BRAIN OEDEMA [None]
  - COMA SCALE ABNORMAL [None]
  - HYPERGLYCAEMIA [None]
  - BRADYCARDIA [None]
  - METABOLIC ACIDOSIS [None]
  - HYPERTENSION [None]
  - MYDRIASIS [None]
  - PUPIL FIXED [None]
  - THIRST [None]
  - DIABETES INSIPIDUS [None]
  - DIABETIC KETOACIDOSIS [None]
  - RENAL FAILURE ACUTE [None]
